FAERS Safety Report 5314482-4 (Version None)
Quarter: 2007Q2

REPORT INFORMATION
  Report Type: 
  Country: None (occurrence: None)
  Receive Date: 20070502
  Receipt Date: 20070118
  Transmission Date: 20071010
  Serious: No
  Sender: FDA-Public Use
  Company Number: US-GLAXOSMITHKLINE-A0636162A

PATIENT
  Age: 4 Month
  Sex: Male

DRUGS (1)
  1. AMOXIL [Suspect]
     Indication: RENAL DISORDER
     Dosage: 80MG AT NIGHT
     Route: 048
     Dates: start: 20070107

REACTIONS (1)
  - EXPIRED DRUG ADMINISTERED [None]
